FAERS Safety Report 17115795 (Version 1)
Quarter: 2019Q4

REPORT INFORMATION
  Report Type: Spontaneous
  Country: IT (occurrence: IT)
  Receive Date: 20191205
  Receipt Date: 20191205
  Transmission Date: 20200122
  Serious: Yes (Other)
  Sender: FDA-Public Use
  Company Number: IT-MYLANLABS-2019M1119186

PATIENT
  Age: 72 Year
  Sex: Male
  Weight: 90 kg

DRUGS (4)
  1. TOTALIP [Interacting]
     Active Substance: ATORVASTATIN
     Indication: DYSLIPIDAEMIA
     Dosage: 2 DOSAGE FORM, QD
     Route: 048
  2. GAVISCON ADVANCE                   /00926503/ [Concomitant]
     Active Substance: SODIUM ALGINATE
     Dosage: UNK
  3. PANTOPRAZOLO MYLAN 40 MG COMPRESSE GASTRORESISTENTI [Suspect]
     Active Substance: PANTOPRAZOLE SODIUM
     Indication: GASTROOESOPHAGEAL REFLUX DISEASE
     Dosage: 2 DOSAGE FORM, QD
     Route: 048
     Dates: start: 20190227, end: 20190515
  4. ENALAPRIL [Concomitant]
     Active Substance: ENALAPRIL
     Dosage: 20 MILLIGRAM

REACTIONS (2)
  - Drug interaction [Recovered/Resolved]
  - Myalgia [Recovered/Resolved]

NARRATIVE: CASE EVENT DATE: 20190312
